FAERS Safety Report 12091989 (Version 1)
Quarter: 2016Q1

REPORT INFORMATION
  Report Type: Report from Study
  Country: US (occurrence: US)
  Receive Date: 20160219
  Receipt Date: 20160219
  Transmission Date: 20160526
  Serious: No
  Sender: FDA-Public Use
  Company Number: US-AMGEN-USASL2016017765

PATIENT
  Age: 59 Year
  Sex: Female

DRUGS (2)
  1. ENBREL [Suspect]
     Active Substance: ETANERCEPT
     Indication: RHEUMATOID ARTHRITIS
     Dosage: 50 MG, QWK
     Route: 065
     Dates: start: 1998
  2. ENBREL [Suspect]
     Active Substance: ETANERCEPT
     Dosage: 25 MG, EVERY 10 DAYS
     Route: 065

REACTIONS (6)
  - Drug hypersensitivity [Unknown]
  - Eye disorder [Unknown]
  - Drug effect incomplete [Unknown]
  - Adverse event [Unknown]
  - Injection site pain [Unknown]
  - Intentional product misuse [Unknown]
